APPROVED DRUG PRODUCT: THIOTHIXENE
Active Ingredient: THIOTHIXENE
Strength: 2MG
Dosage Form/Route: CAPSULE;ORAL
Application: A211642 | Product #002 | TE Code: AB
Applicant: NOVITIUM PHARMA LLC
Approved: Apr 5, 2019 | RLD: No | RS: No | Type: RX